FAERS Safety Report 4299709-2 (Version None)
Quarter: 2004Q1

REPORT INFORMATION
  Report Type: 
  Country: None (occurrence: None)
  Receive Date: 20040126
  Receipt Date: 20031111
  Transmission Date: 20041129
  Serious: No
  Sender: FDA-Public Use
  Company Number: USA031152247

PATIENT
  Age: 36 Year
  Sex: Female
  Weight: 52 kg

DRUGS (5)
  1. STRATTERA [Suspect]
     Indication: DEPRESSION
     Dosage: 25 MG/DAY
  2. ANAFRANIL [Concomitant]
  3. ZYRTEC [Concomitant]
  4. VISTRAIL (HYDROXYZINE EMBONATE) [Concomitant]
  5. KLONOPIN [Concomitant]

REACTIONS (4)
  - HEADACHE [None]
  - INFECTION [None]
  - PSYCHOMOTOR HYPERACTIVITY [None]
  - VISION BLURRED [None]
